FAERS Safety Report 14604820 (Version 1)
Quarter: 2018Q1

REPORT INFORMATION
  Report Type: Spontaneous
  Country: GB (occurrence: GB)
  Receive Date: 20180306
  Receipt Date: 20180306
  Transmission Date: 20180509
  Serious: Yes (Life-Threatening, Disabling, Other)
  Sender: FDA-Public Use
  Company Number: GB-GLAXOSMITHKLINE-GB2018035017

PATIENT
  Age: 56 Year
  Sex: Female
  Weight: 61.68 kg

DRUGS (1)
  1. ROPINIROLE HYDROCHLORIDE. [Suspect]
     Active Substance: ROPINIROLE HYDROCHLORIDE
     Indication: RESTLESS LEGS SYNDROME
     Dosage: 2.5 MG, UNK
     Route: 048
     Dates: start: 20000101, end: 20160810

REACTIONS (4)
  - Muscle spasms [Recovered/Resolved with Sequelae]
  - Withdrawal syndrome [Unknown]
  - Condition aggravated [Recovered/Resolved with Sequelae]
  - Restless legs syndrome [Recovered/Resolved with Sequelae]

NARRATIVE: CASE EVENT DATE: 20160401
